FAERS Safety Report 12583550 (Version 1)
Quarter: 2016Q3

REPORT INFORMATION
  Report Type: Spontaneous
  Country: US (occurrence: US)
  Receive Date: 20160722
  Receipt Date: 20160722
  Transmission Date: 20161109
  Serious: No
  Sender: FDA-Public Use
  Company Number: US-GALDERMA-US16002708

PATIENT
  Age: 35 Year
  Sex: Female

DRUGS (6)
  1. DIFFERIN [Suspect]
     Active Substance: ADAPALENE
     Indication: ACNE CYSTIC
     Dosage: 0.3%
     Route: 061
     Dates: start: 201602
  2. DIFFERIN [Suspect]
     Active Substance: ADAPALENE
     Indication: RASH PAPULAR
  3. DIFFERIN [Suspect]
     Active Substance: ADAPALENE
     Indication: ACNE CYSTIC
     Dosage: 0.1%
     Route: 061
  4. DIFFERIN [Suspect]
     Active Substance: ADAPALENE
     Indication: CYST
     Route: 061
  5. DIFFERIN [Suspect]
     Active Substance: ADAPALENE
     Indication: CYST
     Route: 061
  6. DIFFERIN [Suspect]
     Active Substance: ADAPALENE
     Indication: RASH PAPULAR

REACTIONS (3)
  - Product use issue [Not Recovered/Not Resolved]
  - Sticky skin [Not Recovered/Not Resolved]
  - Skin discomfort [Not Recovered/Not Resolved]

NARRATIVE: CASE EVENT DATE: 201602
